FAERS Safety Report 6785733-4 (Version None)
Quarter: 2010Q2

REPORT INFORMATION
  Report Type: 
  Country: None (occurrence: None)
  Receive Date: 20100623
  Receipt Date: 20100618
  Transmission Date: 20101027
  Serious: Yes (Death, Hospitalization)
  Sender: FDA-Public Use
  Company Number: PHHY2010US39733

PATIENT
  Sex: Male

DRUGS (1)
  1. SANDOSTATIN LAR [Suspect]

REACTIONS (3)
  - MALIGNANT NEOPLASM PROGRESSION [None]
  - OESOPHAGEAL VARICES HAEMORRHAGE [None]
  - PANCREATIC NEUROENDOCRINE TUMOUR [None]
